FAERS Safety Report 5055965-4 (Version None)
Quarter: 2006Q3

REPORT INFORMATION
  Report Type: 
  Country: None (occurrence: None)
  Receive Date: 20060720
  Receipt Date: 20060711
  Transmission Date: 20061208
  Serious: Yes (Hospitalization)
  Sender: FDA-Public Use
  Company Number: FR-AVENTIS-200612492FR

PATIENT
  Age: 85 Year
  Sex: Male
  Weight: 83 kg

DRUGS (4)
  1. LASILIX [Suspect]
     Route: 048
  2. CIBADREX ^CIBA-GEIGY^ [Suspect]
     Indication: HYPERTENSION
     Route: 048
  3. ANAFRANIL [Suspect]
     Route: 048
     Dates: end: 20060620
  4. AMLOR [Suspect]
     Route: 048

REACTIONS (2)
  - FALL [None]
  - RHABDOMYOLYSIS [None]
